FAERS Safety Report 21995384 (Version 16)
Quarter: 2023Q4

REPORT INFORMATION
  Report Type: Spontaneous
  Country: US (occurrence: US)
  Receive Date: 20230215
  Receipt Date: 20231130
  Transmission Date: 20240109
  Serious: Yes (Other)
  Sender: FDA-Public Use
  Company Number: US-PFIZER INC-202300063572

PATIENT
  Age: 64 Year
  Sex: Male
  Weight: 104.3 kg

DRUGS (4)
  1. GENOTROPIN [Suspect]
     Active Substance: SOMATROPIN
     Indication: Growth hormone deficiency
     Dosage: UNK
     Dates: start: 20230415
  2. GENOTROPIN [Suspect]
     Active Substance: SOMATROPIN
     Dosage: 1 MG, 2X/DAY (BY INJECTION SUBCUTANEOUS)
     Route: 058
     Dates: start: 202301
  3. GENOTROPIN [Suspect]
     Active Substance: SOMATROPIN
     Dosage: 1 MG, DAILY
  4. GENOTROPIN [Suspect]
     Active Substance: SOMATROPIN
     Dosage: UNK
     Dates: start: 20230720

REACTIONS (18)
  - Brain injury [Unknown]
  - Marfan^s syndrome [Unknown]
  - Cranial nerve paralysis [Unknown]
  - Concussion [Unknown]
  - Craniocerebral injury [Unknown]
  - Road traffic accident [Unknown]
  - Depression [Unknown]
  - Suture related complication [Unknown]
  - Nerve injury [Unknown]
  - Tooth disorder [Unknown]
  - Arthralgia [Unknown]
  - Acquired growth hormone resistance [Unknown]
  - Diplopia [Unknown]
  - Intentional misuse of drug delivery system [Unknown]
  - Intentional product misuse [Unknown]
  - Product label confusion [Unknown]
  - Wrong technique in device usage process [Unknown]
  - Device leakage [Unknown]

NARRATIVE: CASE EVENT DATE: 20230208
